FAERS Safety Report 17393473 (Version 1)
Quarter: 2020Q1

REPORT INFORMATION
  Report Type: Spontaneous
  Country: US (occurrence: US)
  Receive Date: 20200208
  Receipt Date: 20200208
  Transmission Date: 20200409
  Serious: No
  Sender: FDA-Public Use
  Company Number: US-TEVA-2020-US-1181351

PATIENT
  Age: 60 Year
  Sex: Female

DRUGS (1)
  1. BUPROPION XL TEVA [Suspect]
     Active Substance: BUPROPION HYDROCHLORIDE
     Route: 065
     Dates: start: 201912

REACTIONS (5)
  - Withdrawal syndrome [Unknown]
  - Abdominal pain upper [Recovered/Resolved]
  - Hyperhidrosis [Unknown]
  - Emotional disorder [Unknown]
  - Crying [Unknown]
